FAERS Safety Report 19485381 (Version 1)
Quarter: 2021Q3

REPORT INFORMATION
  Report Type: Spontaneous
  Country: NO (occurrence: NO)
  Receive Date: 20210702
  Receipt Date: 20210702
  Transmission Date: 20211014
  Serious: Yes (Hospitalization, Other)
  Sender: FDA-Public Use
  Company Number: NO-LUPIN PHARMACEUTICALS INC.-2021-10893

PATIENT
  Age: 6 Decade
  Sex: Male

DRUGS (13)
  1. LEVODOPA/CARBIDOPA [Concomitant]
     Active Substance: CARBIDOPA\LEVODOPA
     Indication: PARKINSON^S DISEASE
     Dosage: UNK (SLOW RELEASE FORMULATION; LEDD LEVODOPA: 75MG)
     Route: 048
  2. ROTIGOTINE [Concomitant]
     Active Substance: ROTIGOTINE
     Indication: PSYCHOTIC DISORDER
     Dosage: UNK (SUSTAINED?RELEASE PATCHES)
     Route: 062
  3. QUETIAPINE FUMARATE. [Suspect]
     Active Substance: QUETIAPINE FUMARATE
     Indication: ANXIETY
     Dosage: 50 MILLIGRAM
     Route: 065
  4. LEVODOPA, CARBDOPA, ENTACAPON [Suspect]
     Active Substance: CARBIDOPA\ENTACAPONE\LEVODOPA
     Dosage: UNK (RESTARTED WITH DOSE ESCALATION OVER THE NEXT FEW DAYS)
     Route: 048
  5. RASAGILINE. [Suspect]
     Active Substance: RASAGILINE
     Indication: PARKINSON^S DISEASE
     Dosage: LEDD: 100MG
     Route: 065
  6. PRAMIPEXOLE. [Suspect]
     Active Substance: PRAMIPEXOLE
     Indication: PARKINSON^S DISEASE
     Dosage: 1.05 MILLIGRAM, TID (LEDD: 315MG)
     Route: 065
  7. ENOXAPARIN [Concomitant]
     Active Substance: ENOXAPARIN
     Indication: DRUG THERAPY
     Dosage: 40 MILLIGRAM, QD
     Route: 058
  8. LEVODOPA, CARBDOPA, ENTACAPON [Suspect]
     Active Substance: CARBIDOPA\ENTACAPONE\LEVODOPA
     Indication: PARKINSON^S DISEASE
     Dosage: UNK (SEVEN TIMES DAILY; LEVODOPA?EQUIVALENT DOSES (LEDD): ENTACAPONE 462MG, LEVODOPA 1400MG)
     Route: 048
  9. LEVODOPA, CARBDOPA, ENTACAPON [Suspect]
     Active Substance: CARBIDOPA\ENTACAPONE\LEVODOPA
     Dosage: UNK (REDUCED TO LEVODOPA/CARBIDOPA/ENTACAPONE 125/31.5/200 MG SEVEN TIMES DAILY)
     Route: 048
  10. QUETIAPINE FUMARATE. [Suspect]
     Active Substance: QUETIAPINE FUMARATE
     Indication: POOR QUALITY SLEEP
  11. CLOZAPINE. [Suspect]
     Active Substance: CLOZAPINE
     Indication: PSYCHOTIC DISORDER
     Dosage: 25 MILLIGRAM
     Route: 065
  12. LEVODOPA/BENSERAZIDE [Concomitant]
     Active Substance: BENSERAZIDE\LEVODOPA
     Indication: PARKINSON^S DISEASE
     Dosage: UNK (SOLUBLE; LEDD : 800?900 MG)
     Route: 045
  13. DUODOPA [Concomitant]
     Active Substance: CARBIDOPA\LEVODOPA
     Indication: PARKINSON^S DISEASE
     Dosage: UNK (BY PUMP)
     Route: 065

REACTIONS (10)
  - Hypomania [Not Recovered/Not Resolved]
  - Impulsive behaviour [Not Recovered/Not Resolved]
  - Withdrawal syndrome [Unknown]
  - Dyskinesia [Not Recovered/Not Resolved]
  - Cognitive disorder [Not Recovered/Not Resolved]
  - Psychotic disorder [Not Recovered/Not Resolved]
  - Psychomotor hyperactivity [Not Recovered/Not Resolved]
  - Delusion [Not Recovered/Not Resolved]
  - Emotional disorder [Not Recovered/Not Resolved]
  - Parkinsonism hyperpyrexia syndrome [Not Recovered/Not Resolved]
